APPROVED DRUG PRODUCT: CAPITAL AND CODEINE
Active Ingredient: ACETAMINOPHEN; CODEINE PHOSPHATE
Strength: 325MG;30MG
Dosage Form/Route: TABLET;ORAL
Application: A083643 | Product #001
Applicant: CARNRICK LABORATORIES INC DIV GW CARNRICK CO
Approved: Approved Prior to Jan 1, 1982 | RLD: No | RS: No | Type: DISCN